FAERS Safety Report 25320368 (Version 1)
Quarter: 2025Q2

REPORT INFORMATION
  Report Type: Spontaneous
  Country: US (occurrence: US)
  Receive Date: 20250515
  Receipt Date: 20250515
  Transmission Date: 20250717
  Serious: No
  Sender: GLAXOSMITHKLINE
  Company Number: US-GSKCCFUS-Case-02293004_AE-123467

PATIENT
  Age: 42 Year
  Sex: Male

DRUGS (1)
  1. BENLYSTA [Suspect]
     Active Substance: BELIMUMAB
     Indication: Product used for unknown indication
     Dates: start: 20250327

REACTIONS (4)
  - Pallor [Unknown]
  - Hyperhidrosis [Unknown]
  - Malaise [Unknown]
  - Haematoma [Unknown]

NARRATIVE: CASE EVENT DATE: 20250327
